FAERS Safety Report 8273920-8 (Version None)
Quarter: 2012Q2

REPORT INFORMATION
  Report Type: 
  Country: None (occurrence: None)
  Receive Date: 20120411
  Receipt Date: 20120330
  Transmission Date: 20120825
  Serious: Yes (Other)
  Sender: FDA-Public Use
  Company Number: US-ELI_LILLY_AND_COMPANY-US201201004314

PATIENT
  Sex: Female

DRUGS (2)
  1. FORTEO [Suspect]
     Indication: OSTEOPOROSIS
     Dosage: UNK, QD
     Route: 065
     Dates: start: 20120103
  2. FORTEO [Suspect]
     Dosage: UNK, QD

REACTIONS (8)
  - PAIN [None]
  - HERNIA REPAIR [None]
  - PYREXIA [None]
  - ASTHENIA [None]
  - CONSTIPATION [None]
  - INFLUENZA LIKE ILLNESS [None]
  - ARTHRALGIA [None]
  - MUSCULOSKELETAL DISCOMFORT [None]
